FAERS Safety Report 4417714-X (Version None)
Quarter: 2004Q3

REPORT INFORMATION
  Report Type: 
  Country: None (occurrence: None)
  Receive Date: 20040803
  Receipt Date: 20040720
  Transmission Date: 20050211
  Serious: Yes (Hospitalization)
  Sender: FDA-Public Use
  Company Number: 207974

PATIENT
  Age: 61 Year
  Sex: Female

DRUGS (10)
  1. AVASTIN [Suspect]
     Indication: COLON CANCER METASTATIC
     Dosage: 200 MG, Q2W, INTRAVENOUS
     Route: 042
     Dates: start: 20040331
  2. IRINOTECAN(IRINOTECAN HYDROCHLORIDE) [Suspect]
     Indication: COLON CANCER METASTATIC
     Dosage: 65 MG, 1/WEEK, INTRAVENOUS
     Route: 042
     Dates: start: 20040331
  3. FLUOROURACIL [Suspect]
     Indication: COLON CANCER METASTATIC
     Dosage: 350 MG, 1/WEEK, INTRAVENOUS
     Route: 042
     Dates: start: 20040331
  4. LEUCOVORIN CALCIUM [Suspect]
     Indication: COLON CANCER METASTATIC
     Dosage: 15 MG, 1/WEEK, INTRAVENOUS
     Route: 042
     Dates: start: 20040331
  5. DIGOXIN [Concomitant]
  6. NIFEREX (POLYSACCHARIDE-IRON COMPLEX) [Concomitant]
  7. VALIUM [Concomitant]
  8. RESTORIL [Concomitant]
  9. ZOLOFT [Concomitant]
  10. PERCOCET (ACETAMINIPHEN OXYCODONE HYDROCHLORIDE) [Concomitant]

REACTIONS (3)
  - DIARRHOEA [None]
  - DISEASE RECURRENCE [None]
  - HYPOMAGNESAEMIA [None]
